FAERS Safety Report 9028923 (Version 2)
Quarter: 2013Q1

REPORT INFORMATION
  Report Type: Report from Study
  Country: AU (occurrence: AU)
  Receive Date: 20130124
  Receipt Date: 20130206
  Transmission Date: 20140127
  Serious: Yes (Other)
  Sender: FDA-Public Use
  Company Number: PHHY2013AU005908

PATIENT
  Age: 45 Year
  Sex: Female

DRUGS (1)
  1. CLOZARIL (CLOZAPINE) [Suspect]
     Dosage: UNK UKN, UNK
     Dates: start: 1994

REACTIONS (4)
  - Mitral valve incompetence [Unknown]
  - Sinus tachycardia [Unknown]
  - Electrocardiogram QT prolonged [Unknown]
  - Electrocardiogram QRS complex abnormal [Unknown]
